FAERS Safety Report 7252076-4 (Version None)
Quarter: 2011Q1

REPORT INFORMATION
  Report Type: 
  Country: None (occurrence: None)
  Receive Date: 20110128
  Receipt Date: 20100428
  Transmission Date: 20110831
  Serious: Yes (Other)
  Sender: FDA-Public Use
  Company Number: US-ABBOTT-10P-163-0641647-00

PATIENT
  Sex: Female
  Weight: 68.554 kg

DRUGS (2)
  1. ARAVA [Concomitant]
     Indication: RHEUMATOID ARTHRITIS
  2. HUMIRA [Suspect]
     Indication: RHEUMATOID ARTHRITIS
     Route: 058
     Dates: start: 20070101, end: 20090827

REACTIONS (7)
  - SKIN ULCER [None]
  - ALOPECIA [None]
  - SKIN DISCOLOURATION [None]
  - RHEUMATOID ARTHRITIS [None]
  - TUBERCULOSIS [None]
  - SCAR [None]
  - PSORIASIS [None]
